FAERS Safety Report 23181260 (Version 3)
Quarter: 2024Q1

REPORT INFORMATION
  Report Type: Report from Study
  Country: US (occurrence: US)
  Receive Date: 20231114
  Receipt Date: 20240214
  Transmission Date: 20240409
  Serious: Yes (Other)
  Sender: FDA-Public Use
  Company Number: US-AstraZeneca-CH-00502037A

PATIENT
  Sex: Male

DRUGS (2)
  1. SOLIRIS [Suspect]
     Active Substance: ECULIZUMAB
     Indication: Myasthenia gravis
     Dosage: UNK
     Route: 065
  2. HUMAN IMMUNOGLOBULIN G [Suspect]
     Active Substance: HUMAN IMMUNOGLOBULIN G
     Indication: Product used for unknown indication
     Dosage: UNK
     Route: 042

REACTIONS (10)
  - Myasthenia gravis [Unknown]
  - Dysphagia [Recovered/Resolved]
  - Speech disorder [Not Recovered/Not Resolved]
  - Mastication disorder [Recovered/Resolved]
  - Musculoskeletal discomfort [Unknown]
  - Respiratory tract infection [Unknown]
  - Drug ineffective [Unknown]
  - Influenza [Unknown]
  - Urticaria [Unknown]
  - Nasopharyngitis [Unknown]
